FAERS Safety Report 15120284 (Version 1)
Quarter: 2018Q3

REPORT INFORMATION
  Report Type: Spontaneous
  Country: US (occurrence: US)
  Receive Date: 20180613
  Receipt Date: 20180613
  Transmission Date: 20181010
  Serious: Yes (Other)
  Sender: FDA-Public Use
  Company Number: None

PATIENT
  Age: 32 Year
  Sex: Female
  Weight: 85.5 kg

DRUGS (6)
  1. HYDROCHLOROTHIAZIDE. [Concomitant]
     Active Substance: HYDROCHLOROTHIAZIDE
  2. KELNOR 1/35 [Concomitant]
     Active Substance: ETHINYL ESTRADIOL\ETHYNODIOL DIACETATE
  3. ENALAPRIL [Concomitant]
     Active Substance: ENALAPRIL
  4. OXYCODONE [Concomitant]
     Active Substance: OXYCODONE
  5. OXYCODONE HCL 15MG, GENERIC FOR ROXICODONE [Suspect]
     Active Substance: OXYCODONE HYDROCHLORIDE
     Indication: SCIATICA
     Dosage: ?          QUANTITY:90 TABLET(S);?
     Route: 048
  6. ADDERALL [Concomitant]
     Active Substance: AMPHETAMINE ASPARTATE\AMPHETAMINE SULFATE\DEXTROAMPHETAMINE SACCHARATE\DEXTROAMPHETAMINE SULFATE

REACTIONS (10)
  - Pyrexia [None]
  - Abdominal pain [None]
  - Diarrhoea [None]
  - Vomiting [None]
  - Confusional state [None]
  - Chills [None]
  - Hyperhidrosis [None]
  - Muscle spasms [None]
  - Withdrawal syndrome [None]
  - Lacrimation increased [None]

NARRATIVE: CASE EVENT DATE: 20180110
